FAERS Safety Report 13243866 (Version 1)
Quarter: 2017Q1

REPORT INFORMATION
  Report Type: Spontaneous
  Country: US (occurrence: US)
  Receive Date: 20170217
  Receipt Date: 20170217
  Transmission Date: 20170428
  Serious: No
  Sender: FDA-Public Use
  Company Number: None

PATIENT
  Age: 38 Year
  Sex: Male
  Weight: 82.9 kg

DRUGS (1)
  1. RITUXIMAB (MOAB C2B2 ANTI CD20, CHIMERIC) [Suspect]
     Active Substance: RITUXIMAB
     Dates: end: 20170210

REACTIONS (4)
  - Restlessness [None]
  - Hypotension [None]
  - Blood pressure systolic decreased [None]
  - Cardio-respiratory arrest [None]

NARRATIVE: CASE EVENT DATE: 20170210
